FAERS Safety Report 21338467 (Version 2)
Quarter: 2022Q4

REPORT INFORMATION
  Report Type: Spontaneous
  Country: PT (occurrence: PT)
  Receive Date: 20220915
  Receipt Date: 20221001
  Transmission Date: 20230113
  Serious: Yes (Hospitalization)
  Sender: FDA-Public Use
  Company Number: PT-TEVA-2022-PT-2072340

PATIENT
  Age: 68 Year
  Sex: Male

DRUGS (3)
  1. ALLOPURINOL [Suspect]
     Active Substance: ALLOPURINOL
     Indication: Hyperuricaemia
     Route: 065
  2. EVEROLIMUS [Suspect]
     Active Substance: EVEROLIMUS
     Indication: Stenosis
     Route: 065
  3. FLUCLOXACILLIN [Suspect]
     Active Substance: FLUCLOXACILLIN
     Indication: Staphylococcal bacteraemia
     Route: 065

REACTIONS (4)
  - Stevens-Johnson syndrome [Unknown]
  - Coronary artery aneurysm [Unknown]
  - Fungal infection [Unknown]
  - Drug ineffective [Unknown]
